FAERS Safety Report 5525282-4 (Version None)
Quarter: 2008Q1

REPORT INFORMATION
  Report Type: 
  Country: None (occurrence: None)
  Receive Date: 20071120
  Receipt Date: 20071120
  Transmission Date: 20080703
  Serious: No
  Sender: FDA-Public Use
  Company Number: None

PATIENT
  Sex: Female
  Weight: 145.151 kg

DRUGS (1)
  1. CREST W/ FLUORIDE [Suspect]
     Indication: DENTAL CLEANING
     Dosage: 1 INCH ON BRUSH 2X A DAY PO
     Route: 048
     Dates: start: 20070601, end: 20071119

REACTIONS (4)
  - ANGER [None]
  - APHTHOUS STOMATITIS [None]
  - FACE OEDEMA [None]
  - LIP SWELLING [None]
